FAERS Safety Report 5555425-8 (Version None)
Quarter: 2007Q4

REPORT INFORMATION
  Report Type: 
  Country: None (occurrence: None)
  Receive Date: 20071130
  Receipt Date: 20070821
  Transmission Date: 20080405
  Serious: No
  Sender: FDA-Public Use
  Company Number: 2007PV032357

PATIENT
  Age: 73 Year
  Sex: Male
  Weight: 81.6 kg

DRUGS (19)
  1. EXENATIDE(EXENATIDE) PEN,DISPOSABLE [Suspect]
     Indication: TYPE 2 DIABETES MELLITUS
     Dosage: 5 UG, 2/D, SUBCUTANEOUS ; 10 UG, 2/D, SUBCUTANEOUS ; 10 UG, 2/D, SUBCUTANEOUS
     Route: 058
     Dates: start: 20060401, end: 20060101
  2. EXENATIDE(EXENATIDE) PEN,DISPOSABLE [Suspect]
     Indication: TYPE 2 DIABETES MELLITUS
     Dosage: 5 UG, 2/D, SUBCUTANEOUS ; 10 UG, 2/D, SUBCUTANEOUS ; 10 UG, 2/D, SUBCUTANEOUS
     Route: 058
     Dates: start: 20070101, end: 20070201
  3. EXENATIDE(EXENATIDE) PEN,DISPOSABLE [Suspect]
     Indication: TYPE 2 DIABETES MELLITUS
     Dosage: 5 UG, 2/D, SUBCUTANEOUS ; 10 UG, 2/D, SUBCUTANEOUS ; 10 UG, 2/D, SUBCUTANEOUS
     Route: 058
     Dates: start: 20060101
  4. EXENATIDE(EXENATIDE) PEN,DISPOSABLE [Suspect]
     Dosage: 10 UG, 2/D, SUBCUTANEOUS
     Route: 058
     Dates: start: 20070201
  5. EXENATIDE(EXENATIDE) PEN,DISPOSABLE [Suspect]
     Dosage: 10 UG, 2/D, SUBCUTANEOUS
     Route: 058
     Dates: start: 20070101
  6. EXENATIDE(EXENATIDE) PEN,DISPOSABLE [Suspect]
     Dosage: 10 UG, 2/D, SUBCUTANEOUS
     Route: 058
  7. EXENATIDE 5MCG PEN, DISPOSABLE DEVICE (EXENATIDE PEN (5MCG)) PEN,DISPO [Concomitant]
  8. EXENATIDE 10MCG PEN, DISPOSABLE DEVICE (EXENATIDE PEN (10MCG)) PEN,DIS [Concomitant]
  9. ACTOS [Concomitant]
  10. METFORMIN HCL [Concomitant]
  11. GLIMEPIRIDE [Concomitant]
  12. FEXOFENADINE HCL [Concomitant]
  13. PLAVIX [Concomitant]
  14. COZAAR (LOSARTAN POASSIUM) [Concomitant]
  15. CRESTOR [Concomitant]
  16. NEXIUM [Concomitant]
  17. REGLAN /USA/ (METOCLOPRAMIDE HYDROCHLORIDE) [Concomitant]
  18. NIFEREX (POLYSACCHARIDE-IRON COMPLEX) [Concomitant]
  19. GLYBURIDE [Concomitant]

REACTIONS (5)
  - BLOOD GLUCOSE ABNORMAL [None]
  - BLOOD GLUCOSE DECREASED [None]
  - DECREASED APPETITE [None]
  - GAIT DISTURBANCE [None]
  - WEIGHT DECREASED [None]
